FAERS Safety Report 11000643 (Version 1)
Quarter: 2015Q2

REPORT INFORMATION
  Report Type: Spontaneous
  Country: US (occurrence: US)
  Receive Date: 20150408
  Receipt Date: 20150408
  Transmission Date: 20150821
  Serious: No
  Sender: FDA-Public Use
  Company Number: US-SA-2014SA139249

PATIENT
  Age: 84 Year
  Sex: Female

DRUGS (1)
  1. ALLEGRA [Suspect]
     Active Substance: FEXOFENADINE HYDROCHLORIDE
     Indication: MULTIPLE ALLERGIES
     Dosage: TAKEN FROM- ^2-3 MONTHS
     Route: 048

REACTIONS (5)
  - Ear disorder [Unknown]
  - Hypoacusis [Unknown]
  - Head discomfort [Unknown]
  - Therapeutic response decreased [Unknown]
  - Dysphonia [Unknown]
